FAERS Safety Report 12803945 (Version 4)
Quarter: 2017Q2

REPORT INFORMATION
  Report Type: Spontaneous
  Country: US (occurrence: US)
  Receive Date: 20161003
  Receipt Date: 20170629
  Transmission Date: 20170830
  Serious: Yes (Other)
  Sender: FDA-Public Use
  Company Number: US-PFIZER INC-2016460450

PATIENT
  Age: 18 Year
  Sex: Female

DRUGS (1)
  1. TESTOSTERONE CIPIONATE [Suspect]
     Active Substance: TESTOSTERONE
     Indication: TRANSGENDER HORMONAL THERAPY
     Dosage: 1ML OF 200 MG/ML, TWICE A WEEK
     Route: 030

REACTIONS (2)
  - Product use issue [Unknown]
  - Uterine cervical metaplasia [Unknown]
